FAERS Safety Report 5405797-X (Version None)
Quarter: 2007Q3

REPORT INFORMATION
  Report Type: 
  Country: None (occurrence: None)
  Receive Date: 20070802
  Receipt Date: 20070720
  Transmission Date: 20080115
  Serious: Yes (Hospitalization, Other)
  Sender: FDA-Public Use
  Company Number: 2007SP011487

PATIENT
  Age: 72 Year
  Sex: Female
  Weight: 50.8029 kg

DRUGS (5)
  1. MIRALAX [Suspect]
     Indication: DRUG USE FOR UNKNOWN INDICATION
     Dosage: 17 GM;QD;PO
     Route: 048
     Dates: start: 20060501, end: 20070701
  2. LANOXIN [Concomitant]
  3. POTASSIUM CHLORIDE [Concomitant]
  4. FUROSEMIDE [Concomitant]
  5. FIBERCON [Concomitant]

REACTIONS (2)
  - INTESTINAL OBSTRUCTION [None]
  - OEDEMA PERIPHERAL [None]
